FAERS Safety Report 15389675 (Version 6)
Quarter: 2020Q4

REPORT INFORMATION
  Report Type: Spontaneous
  Country: FR (occurrence: FR)
  Receive Date: 20180917
  Receipt Date: 20201201
  Transmission Date: 20210113
  Serious: Yes (Hospitalization, Other)
  Sender: FDA-Public Use
  Company Number: FR-TEVA-2018-FR-954856

PATIENT
  Age: 23 Year
  Sex: Male
  Weight: 49 kg

DRUGS (24)
  1. AERIUS /01009701/ [Suspect]
     Active Substance: EBASTINE
     Indication: RASH
     Route: 048
     Dates: start: 20090107
  2. METHYLPREDNISOLONE SODIUM SUCCINATE. [Suspect]
     Active Substance: METHYLPREDNISOLONE SODIUM SUCCINATE
     Indication: CROHN^S DISEASE
     Dosage: 100 MG
     Route: 042
     Dates: start: 20090120
  3. STRUCTOKABIVEN /05981101/ [Suspect]
     Active Substance: AMINO ACIDS\DEXTROSE\ELECTROLYTES NOS
     Indication: MALNUTRITION
     Dosage: UNIT DOSE : 4000 ML
     Route: 041
     Dates: start: 20081228, end: 20090207
  4. STRUCTOKABIVEN /05981101/ [Suspect]
     Active Substance: AMINO ACIDS\DEXTROSE\ELECTROLYTES NOS
     Indication: PARENTERAL NUTRITION
     Route: 065
  5. ALANINE [Suspect]
     Active Substance: ALANINE
     Indication: PARENTERAL NUTRITION
     Dosage: 4000 ML DAILY;
     Route: 041
     Dates: start: 20081228, end: 20090207
  6. TRIFLUCAN [Suspect]
     Active Substance: FLUCONAZOLE
     Dosage: 100 MILLIGRAM DAILY;
     Route: 048
     Dates: start: 20090106, end: 20090118
  7. PEVARYL /00418501/ [Suspect]
     Active Substance: ECONAZOLE NITRATE
     Indication: RASH
     Route: 061
     Dates: start: 20090114
  8. TRANXENE [Suspect]
     Active Substance: CLORAZEPATE DIPOTASSIUM
     Indication: ANXIETY
     Route: 042
     Dates: start: 20081222, end: 20090123
  9. TIENAM [Suspect]
     Active Substance: CILASTATIN SODIUM\IMIPENEM
     Indication: ABSCESS
     Route: 042
     Dates: start: 20081222, end: 20090112
  10. CALCIUM CARBONATE. [Suspect]
     Active Substance: CALCIUM CARBONATE
     Indication: PRODUCT USED FOR UNKNOWN INDICATION
     Route: 048
     Dates: start: 20081227
  11. VANCOMYCIN [Suspect]
     Active Substance: VANCOMYCIN
     Route: 042
     Dates: start: 20081220, end: 20090112
  12. CALCIUM CARBONATE, CHOLECALCIFEROL [Suspect]
     Active Substance: CALCIUM CARBONATE\CHOLECALCIFEROL
     Indication: PRODUCT USED FOR UNKNOWN INDICATION
     Route: 048
     Dates: start: 20081227
  13. SPECIAFOLDINE [Suspect]
     Active Substance: FOLIC ACID
     Indication: PRODUCT USED FOR UNKNOWN INDICATION
     Route: 048
     Dates: start: 20081223
  14. TRIFLUCAN [Suspect]
     Active Substance: FLUCONAZOLE
     Dosage: 200 MILLIGRAM DAILY;
     Route: 048
     Dates: start: 20090106, end: 20090130
  15. LOVENOX [Suspect]
     Active Substance: ENOXAPARIN SODIUM
     Indication: PRODUCT USED FOR UNKNOWN INDICATION
     Route: 058
     Dates: start: 20081224
  16. REMICADE [Suspect]
     Active Substance: INFLIXIMAB
     Indication: CROHN^S DISEASE
     Dosage: UNIT DOSE : 100 MG
     Route: 042
     Dates: start: 20090120
  17. TRIFLUCAN [Suspect]
     Active Substance: FLUCONAZOLE
     Indication: RASH
     Dosage: 200 MILLIGRAM DAILY;
     Route: 048
     Dates: start: 20090119, end: 20090130
  18. SOLU-MEDROL [Suspect]
     Active Substance: METHYLPREDNISOLONE SODIUM SUCCINATE
     Indication: CROHN^S DISEASE
     Dosage: UNIT DOSE : 100 MG
     Route: 042
     Dates: start: 20090120
  19. SOLU-MEDROL [Suspect]
     Active Substance: METHYLPREDNISOLONE SODIUM SUCCINATE
     Route: 048
     Dates: start: 20080811
  20. METHYLPREDNISOLONE SODIUM SUCCINATE. [Suspect]
     Active Substance: METHYLPREDNISOLONE SODIUM SUCCINATE
     Indication: ABSCESS
     Route: 042
     Dates: start: 20081222, end: 20091112
  21. VANCOMYCIN [Suspect]
     Active Substance: VANCOMYCIN
     Indication: ABSCESS
     Dosage: 2 GRAM DAILY;
     Route: 042
     Dates: start: 20081220, end: 20090112
  22. CACIT /00987301/ [Suspect]
     Active Substance: CALCIUM CARBONATE
     Indication: PRODUCT USED FOR UNKNOWN INDICATION
     Dosage: QD
     Route: 048
     Dates: start: 20081227
  23. CILASTATIN SODIUM W/IMIPENEM [Suspect]
     Active Substance: CILASTATIN SODIUM\IMIPENEM
     Indication: ABSCESS
     Dosage: UNK
     Route: 042
     Dates: start: 20081222, end: 20090112
  24. ALANINE [Suspect]
     Active Substance: ALANINE
     Indication: MALNUTRITION
     Route: 041

REACTIONS (1)
  - Hepatitis [Recovering/Resolving]

NARRATIVE: CASE EVENT DATE: 20090106
